FAERS Safety Report 7851597-0 (Version None)
Quarter: 2011Q4

REPORT INFORMATION
  Report Type: 
  Country: None (occurrence: None)
  Receive Date: 20111026
  Receipt Date: 20111021
  Transmission Date: 20120403
  Serious: Yes (Hospitalization)
  Sender: FDA-Public Use
  Company Number: VE-ABBOTT-11P-178-0867394-00

PATIENT
  Sex: Male

DRUGS (2)
  1. HUMIRA [Suspect]
     Dates: start: 20111025
  2. HUMIRA [Suspect]
     Indication: PSORIASIS
     Route: 058
     Dates: start: 20080904, end: 20110930

REACTIONS (2)
  - ACCIDENT [None]
  - LIGAMENT DISORDER [None]
